FAERS Safety Report 8180052-6 (Version None)
Quarter: 2012Q1

REPORT INFORMATION
  Report Type: 
  Country: None (occurrence: None)
  Receive Date: 20120302
  Receipt Date: 20120302
  Transmission Date: 20120608
  Serious: Yes (Other)
  Sender: FDA-Public Use
  Company Number: None

PATIENT
  Sex: Male
  Weight: 72.574 kg

DRUGS (12)
  1. RAMIPRIL [Concomitant]
  2. NEXIUM [Concomitant]
  3. OXYCONTIN [Concomitant]
  4. TRICOR [Concomitant]
  5. GLUCOPHAGE [Concomitant]
  6. CLONAZEEPAM [Concomitant]
  7. XANAX [Concomitant]
  8. CRESTOR [Suspect]
     Indication: MYOCARDIAL INFARCTION
     Dosage: 20.0 MG
     Route: 048
  9. CRESTOR [Suspect]
     Indication: BLOOD CHOLESTEROL INCREASED
     Dosage: 20.0 MG
     Route: 048
  10. DIAZEPAM [Concomitant]
  11. DIAZEPAM [Concomitant]
  12. ATENOLOL [Concomitant]

REACTIONS (2)
  - ROAD TRAFFIC ACCIDENT [None]
  - LOSS OF CONSCIOUSNESS [None]
